FAERS Safety Report 20244637 (Version 4)
Quarter: 2022Q1

REPORT INFORMATION
  Report Type: Spontaneous
  Country: US (occurrence: US)
  Receive Date: 20211229
  Receipt Date: 20220214
  Transmission Date: 20220423
  Serious: Yes (Life-Threatening, Hospitalization)
  Sender: FDA-Public Use
  Company Number: US-SAREPTA THERAPEUTICS INC.-SRP2021-001915

PATIENT
  Age: 21 Year
  Sex: Male
  Weight: 39.1 kg

DRUGS (18)
  1. EXONDYS 51 [Suspect]
     Active Substance: ETEPLIRSEN
     Indication: Duchenne muscular dystrophy
     Dosage: 1200 MILLIGRAM, WEEKLY
     Route: 042
     Dates: start: 20180208, end: 20211201
  2. EXONDYS 51 [Suspect]
     Active Substance: ETEPLIRSEN
     Dosage: 1200 MILLIGRAM, WEEKLY
     Route: 042
     Dates: start: 20220202
  3. PREDNISOLONE [Concomitant]
     Active Substance: PREDNISOLONE
     Indication: Duchenne muscular dystrophy
     Dosage: 20 MILLIGRAM, QD
     Route: 048
     Dates: start: 20180214
  4. CALCIUM\VITAMIN D [Concomitant]
     Active Substance: CALCIUM\VITAMIN D
     Indication: Prophylaxis
     Dosage: 1000-400, DAILY
     Route: 048
     Dates: start: 20180214
  5. COREG [Concomitant]
     Active Substance: CARVEDILOL
     Indication: Tachycardia
     Dosage: 3.125 MILLIGRAM, TID
     Route: 048
     Dates: start: 20170908
  6. MIRALAX [Concomitant]
     Active Substance: POLYETHYLENE GLYCOL 3350
     Indication: Constipation
     Dosage: 17 GRAM, PRN
     Route: 048
     Dates: start: 20170918
  7. VITAMINS [Concomitant]
     Active Substance: VITAMINS
     Indication: Prophylaxis
     Dosage: 1 DOSAGE FORM, QD
     Route: 048
     Dates: start: 20141010
  8. ZESTRIL [Concomitant]
     Active Substance: LISINOPRIL
     Indication: Cardiovascular event prophylaxis
     Dosage: 5 MILLIGRAM, QD
     Route: 048
     Dates: start: 20141024
  9. CREATINE MONOHYDRATE [Concomitant]
     Active Substance: CREATINE MONOHYDRATE
     Indication: Musculoskeletal disorder prophylaxis
     Dosage: 3000 MILLIGRAM, QD
     Route: 048
     Dates: start: 20180214
  10. VITAMIN D3 [Concomitant]
     Active Substance: CHOLECALCIFEROL
     Indication: Vitamin D decreased
     Dosage: 2000 INTERNATIONAL UNIT, QD
     Route: 048
     Dates: start: 20150831
  11. HEPARIN LOCK FLUSH [Concomitant]
     Active Substance: HEPARIN SODIUM
     Indication: Catheter management
     Dosage: 500 INTERNATIONAL UNIT, AS DIRECTED
     Route: 042
     Dates: start: 20210709
  12. HEPARIN LOCK FLUSH [Concomitant]
     Active Substance: HEPARIN SODIUM
     Dosage: 500 INTERNATIONAL UNIT, AS DIRECTED
     Route: 042
     Dates: start: 20211022
  13. SODIUM CHLORIDE [Concomitant]
     Active Substance: SODIUM CHLORIDE
     Indication: Catheter management
     Dosage: 10 MILLILITER, AS DIRECTED
     Route: 042
     Dates: start: 20211022
  14. TUMS [Concomitant]
     Active Substance: CALCIUM CARBONATE
     Indication: Osteoporosis prophylaxis
     Dosage: 450 MILLIGRAM, QD
     Route: 048
     Dates: start: 20200710
  15. PSYLLIUM HUSK [PLANTAGO OVATA SEED HUSK] [Concomitant]
     Indication: Prophylaxis
     Dosage: 1 PACKET, ONCE A DAY
     Route: 048
     Dates: start: 20180427
  16. TYLENOL [Concomitant]
     Active Substance: ACETAMINOPHEN
     Indication: Pain
     Dosage: 650 MILLIGRAM, PRN
     Route: 048
     Dates: start: 20181026
  17. CALCIUM [Concomitant]
     Active Substance: CALCIUM
     Indication: Osteoporosis prophylaxis
     Dosage: 1000 MILLIGRAM, QD
     Route: 048
     Dates: start: 20150831
  18. PROVENTIL [Concomitant]
     Active Substance: ALBUTEROL
     Indication: Pneumonia
     Dosage: 2.5 MILLIGRAM WITH 3% HYPERTONIC SALINE, QID
     Dates: start: 20210704

REACTIONS (3)
  - Acute respiratory failure [Recovered/Resolved]
  - COVID-19 pneumonia [Recovered/Resolved]
  - COVID-19 [Recovered/Resolved]

NARRATIVE: CASE EVENT DATE: 20211201
